FAERS Safety Report 4484882-3 (Version None)
Quarter: 2004Q3

REPORT INFORMATION
  Report Type: 
  Country: None (occurrence: None)
  Receive Date: 20040921
  Receipt Date: 20030902
  Transmission Date: 20050211
  Serious: Yes (Hospitalization)
  Sender: FDA-Public Use
  Company Number: 163-20785-03090369

PATIENT
  Age: 69 Year
  Sex: Male

DRUGS (6)
  1. THALOMID [Suspect]
     Indication: MULTIPLE MYELOMA
     Dosage: 50 MG, DAILY, ORAL
     Route: 048
     Dates: start: 20010912
  2. DEXAMETHASONE [Suspect]
     Indication: MULTIPLE MYELOMA
     Dosage: 40 MG, ORAL
     Route: 048
     Dates: start: 20030804, end: 20030807
  3. CISPLATIN [Suspect]
     Indication: MULTIPLE MYELOMA
     Dosage: 6 MG, INTRAVENOUS
     Route: 042
     Dates: start: 20030804, end: 20030807
  4. ADRIAMYCIN (ADRIAMYCIN) [Suspect]
     Indication: MULTIPLE MYELOMA
     Dosage: 6 MG, INTRAVENOUS
     Route: 042
     Dates: start: 20030804, end: 20030807
  5. CYTOXAN [Suspect]
     Indication: MULTIPLE MYELOMA
     Dosage: 270 MG, INTRAVENOUS
     Route: 042
     Dates: start: 20030804, end: 20030807
  6. ETOPOSIDE [Suspect]
     Indication: MULTIPLE MYELOMA
     Dosage: 27 MG, INTRAVENOUS
     Route: 042
     Dates: start: 20030804, end: 20030807

REACTIONS (6)
  - ABDOMINAL PAIN UPPER [None]
  - ASTHENIA [None]
  - CHILLS [None]
  - NAUSEA [None]
  - THROMBOCYTOPENIA [None]
  - VOMITING [None]
